FAERS Safety Report 4406273-3 (Version None)
Quarter: 2004Q3

REPORT INFORMATION
  Report Type: 
  Country: None (occurrence: None)
  Receive Date: 20040723
  Receipt Date: 20030602
  Transmission Date: 20050211
  Serious: No
  Sender: FDA-Public Use
  Company Number: US-GLAXOSMITHKLINE-A0410392A

PATIENT
  Age: 60 Year
  Sex: Male

DRUGS (3)
  1. AVANDIA [Suspect]
     Route: 048
  2. GLYBURIDE [Concomitant]
     Route: 048
  3. GLUCOPHAGE [Concomitant]
     Route: 048

REACTIONS (2)
  - JOINT SWELLING [None]
  - OEDEMA PERIPHERAL [None]
